FAERS Safety Report 21269379 (Version 1)
Quarter: 2022Q3

REPORT INFORMATION
  Report Type: Spontaneous
  Country: US (occurrence: None)
  Receive Date: 20220829
  Receipt Date: 20220829
  Transmission Date: 20221027
  Serious: Yes (Other)
  Sender: FDA-Public Use
  Company Number: None

PATIENT
  Age: 26 Year
  Sex: Male
  Weight: 57.15 kg

DRUGS (6)
  1. PAXLOVID [Suspect]
     Active Substance: NIRMATRELVIR\RITONAVIR
     Indication: COVID-19
     Dosage: FREQUENCY : TWICE A DAY;?
     Route: 048
     Dates: start: 20220828
  2. VITAMINS [Concomitant]
     Active Substance: VITAMINS
     Dates: start: 20220701
  3. VITAMIN B12 [Concomitant]
     Active Substance: CYANOCOBALAMIN
     Dates: start: 20220701
  4. FISH OIL [Concomitant]
     Active Substance: FISH OIL
     Dates: start: 20220701
  5. Electrolyte drink [Concomitant]
     Dates: start: 20220701
  6. EMERGEN-C [Concomitant]
     Active Substance: VITAMINS
     Dates: start: 20220701

REACTIONS (5)
  - Dysgeusia [None]
  - Heart rate increased [None]
  - Myalgia [None]
  - Headache [None]
  - Insomnia [None]

NARRATIVE: CASE EVENT DATE: 20220828
